FAERS Safety Report 13306858 (Version 1)
Quarter: 2017Q1

REPORT INFORMATION
  Report Type: Spontaneous
  Country: US (occurrence: US)
  Receive Date: 20170308
  Receipt Date: 20170308
  Transmission Date: 20170428
  Serious: No
  Sender: FDA-Public Use
  Company Number: US-AKORN PHARMACEUTICALS-2016AKN00260

PATIENT
  Age: 16 Year
  Sex: Female

DRUGS (6)
  1. LAMICTAL [Concomitant]
     Active Substance: LAMOTRIGINE
  2. ABILIFY [Concomitant]
     Active Substance: ARIPIPRAZOLE
  3. MYORISAN [Suspect]
     Active Substance: ISOTRETINOIN
     Dosage: UNK MG, FOR A THERAPY OF 50 MG DAILY
     Route: 048
     Dates: start: 20160302, end: 2016
  4. LEVOTHYROXINE. [Concomitant]
     Active Substance: LEVOTHYROXINE
  5. MYORISAN [Suspect]
     Active Substance: ISOTRETINOIN
     Indication: ACNE
     Dosage: 40 MG, 1X/DAY
     Route: 048
     Dates: start: 20151222, end: 2016
  6. MYORISAN [Suspect]
     Active Substance: ISOTRETINOIN
     Dosage: UNK, FOR A THERAPY OF 50 MG DAILY
     Dates: start: 2016, end: 2016

REACTIONS (2)
  - Epistaxis [Recovered/Resolved]
  - Rectal haemorrhage [Recovered/Resolved]

NARRATIVE: CASE EVENT DATE: 2016
